FAERS Safety Report 8588821-5 (Version None)
Quarter: 2012Q3

REPORT INFORMATION
  Report Type: 
  Country: None (occurrence: None)
  Receive Date: 20120813
  Receipt Date: 20120801
  Transmission Date: 20120928
  Serious: Yes (Hospitalization)
  Sender: FDA-Public Use
  Company Number: US-BAYER-2012-079370

PATIENT
  Age: 44 Year
  Sex: Female

DRUGS (7)
  1. HYDROCHLOROTHIAZIDE [Concomitant]
     Dosage: 25 MG, UNK
     Dates: start: 20030725, end: 20031209
  2. ZITHROMAX [Concomitant]
     Dosage: UNK
     Dates: start: 20030902
  3. YASMIN [Suspect]
     Dosage: UNK
     Dates: start: 20030509, end: 20030922
  4. IBUPROFEN [Concomitant]
     Dosage: UNK
     Dates: start: 20030602
  5. ZELNORM [Concomitant]
     Dosage: UNK
     Dates: start: 20030714
  6. KLOR-CON [Concomitant]
     Dosage: UNK
     Dates: start: 20030725, end: 20031107
  7. GUAIFENESIN [Concomitant]
     Dosage: UNK
     Dates: start: 20030902

REACTIONS (2)
  - DEEP VEIN THROMBOSIS [None]
  - PULMONARY EMBOLISM [None]
